FAERS Safety Report 10410950 (Version 1)
Quarter: 2014Q1

REPORT INFORMATION
  Report Type: Spontaneous
  Country: US (occurrence: None)
  Receive Date: 20130815
  Receipt Date: 20130815
  Transmission Date: 20141002
  Serious: Yes (Hospitalization, Other)
  Sender: FDA-Public Use
  Company Number: ADR-2013-00722

PATIENT
  Sex: Female
  Weight: 77 kg

DRUGS (1)
  1. LIORESAL INTRATHECAL (BACLOFEN INJECTION) 500 MCG/ML [Suspect]
     Indication: MUSCLE SPASTICITY

REACTIONS (9)
  - Dystonia [None]
  - Fall [None]
  - Muscle spasticity [None]
  - Seroma [None]
  - Hypertonia [None]
  - Gait disturbance [None]
  - Implant site extravasation [None]
  - Muscular weakness [None]
  - Implant site swelling [None]
